FAERS Safety Report 8650654 (Version 7)
Quarter: 2013Q1

REPORT INFORMATION
  Report Type: Spontaneous
  Country: US (occurrence: US)
  Receive Date: 20120705
  Receipt Date: 20130212
  Transmission Date: 20140127
  Serious: Yes (Hospitalization, Congenital Anomaly)
  Sender: FDA-Public Use
  Company Number: US-JNJFOC-20120516348

PATIENT
  Sex: Female

DRUGS (4)
  1. TOPAMAX [Suspect]
     Indication: FOETAL EXPOSURE DURING PREGNANCY
     Route: 064
  2. NEURONTIN [Suspect]
     Indication: FOETAL EXPOSURE DURING PREGNANCY
     Route: 064
  3. PHENOBARBITAL [Suspect]
     Indication: FOETAL EXPOSURE DURING PREGNANCY
     Route: 064
  4. VITAMIN [Concomitant]
     Indication: FOETAL EXPOSURE DURING PREGNANCY
     Route: 064

REACTIONS (12)
  - Cleft palate [Recovering/Resolving]
  - Nose deformity [Recovering/Resolving]
  - Heart disease congenital [Recovered/Resolved]
  - Autism spectrum disorder [Unknown]
  - Small for dates baby [Unknown]
  - Premature baby [Not Recovered/Not Resolved]
  - Hydronephrosis [Unknown]
  - Hyperkalaemia [Unknown]
  - Hyperbilirubinaemia [Unknown]
  - Otitis media chronic [Unknown]
  - Failure to thrive [Unknown]
  - Cleft lip [Recovering/Resolving]
